FAERS Safety Report 25396748 (Version 1)
Quarter: 2025Q2

REPORT INFORMATION
  Report Type: Spontaneous
  Country: GB (occurrence: None)
  Receive Date: 20250604
  Receipt Date: 20250604
  Transmission Date: 20250717
  Serious: Yes (Disabling)
  Sender: FDA-CTU
  Company Number: None

PATIENT
  Age: 59 Year
  Sex: Female
  Weight: 133 kg

DRUGS (6)
  1. MIRTAZAPINE [Suspect]
     Active Substance: MIRTAZAPINE
     Indication: Insomnia
     Route: 048
  2. ESCITALOPRAM [Suspect]
     Active Substance: ESCITALOPRAM OXALATE
  3. CODEINE [Suspect]
     Active Substance: CODEINE
  4. VENLAFAXINE [Suspect]
     Active Substance: VENLAFAXINE HYDROCHLORIDE
  5. GABAPENTIN [Concomitant]
     Active Substance: GABAPENTIN
  6. EVERL 50 HRT [Concomitant]

REACTIONS (8)
  - Alcoholism [None]
  - Drug dependence [None]
  - Abnormal behaviour [None]
  - Drug dependence [None]
  - Ill-defined disorder [None]
  - Drug withdrawal syndrome [None]
  - Gait disturbance [None]
  - Food intolerance [None]

NARRATIVE: CASE EVENT DATE: 20250110
